FAERS Safety Report 17346353 (Version 1)
Quarter: 2020Q1

REPORT INFORMATION
  Report Type: Report from Study
  Country: US (occurrence: US)
  Receive Date: 20200129
  Receipt Date: 20200129
  Transmission Date: 20200409
  Serious: No
  Sender: FDA-Public Use
  Company Number: US-EXELIXIS-CABO-19021613

PATIENT
  Sex: Male
  Weight: 101.13 kg

DRUGS (9)
  1. IRON [Concomitant]
     Active Substance: IRON
  2. SENNA [Concomitant]
     Active Substance: SENNA LEAF\SENNOSIDES\SENNOSIDES A AND B
  3. LENVIMA [Suspect]
     Active Substance: LENVATINIB
     Indication: RENAL CANCER
  4. AFINITOR [Suspect]
     Active Substance: EVEROLIMUS
     Indication: METASTASES TO LUNG
  5. LENVIMA [Suspect]
     Active Substance: LENVATINIB
     Indication: METASTASES TO LUNG
  6. STOOL SOFTENER (DOCUSATE) [Concomitant]
     Active Substance: DOCUSATE
  7. AFINITOR [Suspect]
     Active Substance: EVEROLIMUS
     Indication: RENAL CANCER
     Dosage: 10 MG, UNK
  8. CABOMETYX [Suspect]
     Active Substance: CABOZANTINIB S-MALATE
     Indication: RENAL CANCER
     Dosage: 20 MG, QD
     Route: 048
     Dates: start: 20180312
  9. CABOMETYX [Suspect]
     Active Substance: CABOZANTINIB S-MALATE
     Indication: METASTASES TO LUNG

REACTIONS (3)
  - Taste disorder [Unknown]
  - Constipation [Unknown]
  - Weight decreased [Unknown]
